FAERS Safety Report 4397049-4 (Version None)
Quarter: 2004Q3

REPORT INFORMATION
  Report Type: 
  Country: None (occurrence: None)
  Receive Date: 20040708
  Receipt Date: 20040623
  Transmission Date: 20050211
  Serious: Yes (Hospitalization)
  Sender: FDA-Public Use
  Company Number: FABR-10187

PATIENT
  Age: 82 Year
  Sex: Male
  Weight: 47 kg

DRUGS (10)
  1. FABRAZYME [Suspect]
     Indication: FABRY'S DISEASE
     Dosage: 1 MG/KG Q2WKS IV
     Route: 042
     Dates: start: 20021202
  2. ZANTAC [Concomitant]
  3. GLICLAZIDE [Concomitant]
  4. METFORMIN HCL [Concomitant]
  5. AMIODARONE HCL [Concomitant]
  6. BENDROFLUAZIDE [Concomitant]
  7. METOPROLOL [Concomitant]
  8. MADOPAR [Concomitant]
  9. CIPROXIN [Concomitant]
  10. CO-AMILOFRUSE [Concomitant]

REACTIONS (8)
  - CARDIAC FAILURE [None]
  - DYSPNOEA [None]
  - INCONTINENCE [None]
  - MICTURITION URGENCY [None]
  - NAUSEA [None]
  - PLEURAL EFFUSION [None]
  - PNEUMONIA [None]
  - WEIGHT DECREASED [None]
